FAERS Safety Report 7200110-X (Version None)
Quarter: 2010Q4

REPORT INFORMATION
  Report Type: 
  Country: None (occurrence: None)
  Receive Date: 20101214
  Receipt Date: 20101129
  Transmission Date: 20110411
  Serious: Yes (Other)
  Sender: FDA-Public Use
  Company Number: TPH-00307

PATIENT
  Sex: Male

DRUGS (1)
  1. TRIQUILAR (ETHINYLESTRADIOL + LEVONORGESTREL) COATED TABLET [Suspect]
     Indication: PRODUCT USED FOR UNKNOWN INDICATION
     Dosage: ORAL
     Route: 048

REACTIONS (2)
  - CONSTIPATION [None]
  - DRUG EXPOSURE VIA BREAST MILK [None]
